FAERS Safety Report 9183842 (Version 1)
Quarter: 2013Q1

REPORT INFORMATION
  Report Type: Spontaneous
  Country: DE (occurrence: DE)
  Receive Date: 20130322
  Receipt Date: 20130322
  Transmission Date: 20140127
  Serious: Yes (Other)
  Sender: FDA-Public Use
  Company Number: DE-CUBIST PHARMACEUTICAL, INC.-2013CBST000216

PATIENT
  Sex: Male

DRUGS (4)
  1. CUBICIN [Suspect]
     Indication: DEVICE RELATED INFECTION
     Dosage: 500 MG, Q24H
     Route: 065
     Dates: start: 20130306, end: 20130308
  2. CUBICIN [Suspect]
     Indication: OFF LABEL USE
  3. ROCEPHIN [Suspect]
     Indication: DEVICE RELATED INFECTION
     Dosage: UNK, UNK
     Route: 065
     Dates: start: 20130306, end: 20130308
  4. RIFAMPICIN [Suspect]
     Indication: DEVICE RELATED INFECTION
     Dosage: UNK, UNK
     Route: 065
     Dates: start: 20130306, end: 20130308

REACTIONS (1)
  - Pneumonia [Recovering/Resolving]
